FAERS Safety Report 22139894 (Version 1)
Quarter: 2023Q1

REPORT INFORMATION
  Report Type: Report from Study
  Country: CO (occurrence: CO)
  Receive Date: 20230327
  Receipt Date: 20230327
  Transmission Date: 20230417
  Serious: Yes (Disabling, Other)
  Sender: FDA-Public Use
  Company Number: CO-UCBSA-2023015047

PATIENT
  Age: 74 Year
  Sex: Female

DRUGS (3)
  1. ROTIGOTINE [Suspect]
     Active Substance: ROTIGOTINE
     Indication: Parkinson^s disease
     Dosage: 4 MILLIGRAM, ONCE DAILY (QD)
     Route: 062
     Dates: start: 20221205
  2. CARBIDOPA\LEVODOPA [Concomitant]
     Active Substance: CARBIDOPA\LEVODOPA
     Indication: Parkinson^s disease
     Dosage: 25/250 MG
     Route: 048
  3. RIVASTIGMINE [Concomitant]
     Active Substance: RIVASTIGMINE
     Indication: Parkinson^s disease
     Dosage: 18 MILLIGRAM

REACTIONS (6)
  - Parkinson^s disease [Recovering/Resolving]
  - Headache [Recovering/Resolving]
  - Salivary hypersecretion [Recovering/Resolving]
  - Feeding disorder [Unknown]
  - Drug ineffective [Unknown]
  - Wheelchair user [Unknown]

NARRATIVE: CASE EVENT DATE: 20230102
